FAERS Safety Report 18340463 (Version 1)
Quarter: 2020Q4

REPORT INFORMATION
  Report Type: Spontaneous
  Country: CH (occurrence: CH)
  Receive Date: 20201002
  Receipt Date: 20201002
  Transmission Date: 20210113
  Serious: Yes (Hospitalization)
  Sender: FDA-Public Use
  Company Number: CH-ASTRAZENECA-2020SF26422

PATIENT
  Age: 58 Year
  Sex: Male

DRUGS (6)
  1. ZOLOFT [Suspect]
     Active Substance: SERTRALINE HYDROCHLORIDE
     Dosage: 50.0MG UNKNOWN
     Route: 048
  2. TORASEMID SANDOZ ECO [Concomitant]
     Active Substance: TORSEMIDE
  3. BRILIQUE [Suspect]
     Active Substance: TICAGRELOR
     Dosage: 1.0DF UNKNOWN
     Route: 048
  4. EZETROL [Concomitant]
     Active Substance: EZETIMIBE
  5. ATORVA PFIZER [Concomitant]
     Active Substance: ATORVASTATIN
  6. XARELTO [Suspect]
     Active Substance: RIVAROXABAN
     Dosage: 2.5MG UNKNOWN
     Route: 048
     Dates: start: 2020, end: 20200901

REACTIONS (2)
  - Haemoptysis [Recovered/Resolved]
  - Off label use [Recovered/Resolved]

NARRATIVE: CASE EVENT DATE: 20200901
